FAERS Safety Report 9023839 (Version 2)
Quarter: 2013Q1

REPORT INFORMATION
  Report Type: Spontaneous
  Country: US (occurrence: US)
  Receive Date: 20130121
  Receipt Date: 20130222
  Transmission Date: 20140127
  Serious: Yes (Hospitalization)
  Sender: FDA-Public Use
  Company Number: US-009507513-1301USA008652

PATIENT
  Age: 40 Year
  Sex: Male

DRUGS (1)
  1. SAPHRIS [Suspect]
     Indication: BIPOLAR DISORDER
     Dosage: 10 MG, BID
     Route: 060

REACTIONS (3)
  - Henoch-Schonlein purpura [Unknown]
  - Urticaria [Unknown]
  - Myalgia [Unknown]
